FAERS Safety Report 8190851-2 (Version None)
Quarter: 2012Q1

REPORT INFORMATION
  Report Type: 
  Country: None (occurrence: None)
  Receive Date: 20120307
  Receipt Date: 20120301
  Transmission Date: 20120608
  Serious: Yes (Life-Threatening, Hospitalization)
  Sender: FDA-Public Use
  Company Number: FR-MERCK-1106FRA00021

PATIENT
  Age: 56 Year
  Sex: Male
  Weight: 92 kg

DRUGS (11)
  1. GLICLAZIDE [Suspect]
     Indication: TYPE 2 DIABETES MELLITUS
     Route: 048
  2. ASPIRIN LYSINE [Suspect]
     Indication: CONGESTIVE CARDIOMYOPATHY
     Route: 048
     Dates: start: 20091201
  3. PIOGLITAZONE HYDROCHLORIDE [Suspect]
     Indication: TYPE 2 DIABETES MELLITUS
     Route: 048
     Dates: start: 20060301, end: 20100201
  4. BISOPROLOL FUMARATE [Suspect]
     Indication: CONGESTIVE CARDIOMYOPATHY
     Route: 048
     Dates: start: 20091201
  5. JANUVIA [Suspect]
     Indication: TYPE 2 DIABETES MELLITUS
     Route: 048
     Dates: start: 20091001
  6. ALLOPURINOL [Suspect]
     Indication: HYPERURICAEMIA
     Route: 048
  7. SODIUM POLYSTYRENE SULFONATE [Suspect]
     Indication: HYPERKALAEMIA
     Route: 048
     Dates: start: 20100501
  8. DESMOPRESSIN ACETATE [Suspect]
     Indication: DIABETES INSIPIDUS
     Route: 048
     Dates: start: 19950101
  9. FENOFIBRATE [Suspect]
     Indication: HYPERTRIGLYCERIDAEMIA
     Route: 048
  10. PERINDOPRIL ARGININE [Suspect]
     Indication: CONGESTIVE CARDIOMYOPATHY
     Route: 048
     Dates: start: 20091201
  11. PRAZOSIN HYDROCHLORIDE [Suspect]
     Indication: HYPERTENSION
     Route: 065
     Dates: end: 20100201

REACTIONS (1)
  - BLADDER CANCER [None]
